FAERS Safety Report 15475772 (Version 1)
Quarter: 2018Q4

REPORT INFORMATION
  Report Type: Spontaneous
  Country: FR (occurrence: FR)
  Receive Date: 20181009
  Receipt Date: 20181009
  Transmission Date: 20190205
  Serious: No
  Sender: FDA-Public Use
  Company Number: FR-IPSEN BIOPHARMACEUTICALS, INC.-2018-14715

PATIENT
  Age: 20 Year
  Sex: Female

DRUGS (1)
  1. DECAPEPTYL [Suspect]
     Active Substance: TRIPTORELIN
     Indication: PRODUCT USED FOR UNKNOWN INDICATION
     Dosage: ONE INJECTION
     Route: 065

REACTIONS (2)
  - Hirsutism [Not Recovered/Not Resolved]
  - Infertility female [Not Recovered/Not Resolved]
